FAERS Safety Report 22128076 (Version 1)
Quarter: 2023Q1

REPORT INFORMATION
  Report Type: Spontaneous
  Country: US (occurrence: US)
  Receive Date: 20230323
  Receipt Date: 20230323
  Transmission Date: 20230418
  Serious: No
  Sender: FDA-Public Use
  Company Number: US-002147023-NVSC2023US063319

PATIENT
  Sex: Female

DRUGS (1)
  1. VIVELLE-DOT [Suspect]
     Active Substance: ESTRADIOL
     Indication: Product used for unknown indication
     Dosage: 0.037 MG, (0.0375MG)
     Route: 065

REACTIONS (3)
  - Hot flush [Unknown]
  - Adverse drug reaction [Unknown]
  - Inappropriate schedule of product administration [Unknown]
